FAERS Safety Report 20963801 (Version 1)
Quarter: 2022Q2

REPORT INFORMATION
  Report Type: Spontaneous
  Country: FI (occurrence: FI)
  Receive Date: 20220615
  Receipt Date: 20220615
  Transmission Date: 20220721
  Serious: Yes (Life-Threatening)
  Sender: FDA-Public Use
  Company Number: None

PATIENT
  Sex: Male

DRUGS (1)
  1. BOTOX [Suspect]
     Active Substance: ONABOTULINUMTOXINA
     Indication: Muscle spasticity
     Dosage: 175 UNITS, SINGLE
     Route: 030
     Dates: start: 20211207, end: 20211207

REACTIONS (3)
  - Chest pain [Recovering/Resolving]
  - Acute kidney injury [Recovering/Resolving]
  - Castleman^s disease [Recovering/Resolving]

NARRATIVE: CASE EVENT DATE: 20211207
